FAERS Safety Report 17090638 (Version 1)
Quarter: 2019Q4

REPORT INFORMATION
  Report Type: Spontaneous
  Country: ES (occurrence: ES)
  Receive Date: 20191129
  Receipt Date: 20191129
  Transmission Date: 20200122
  Serious: Yes (Other)
  Sender: FDA-Public Use
  Company Number: ES-009507513-1911ESP008728

PATIENT
  Age: 20 Year
  Sex: Male

DRUGS (3)
  1. FINASTERIDE. [Suspect]
     Active Substance: FINASTERIDE
     Dosage: 5 MILLIGRAM, QD
     Route: 048
     Dates: start: 20190923, end: 20191023
  2. PULMICORT TURBUHALER [Concomitant]
     Active Substance: BUDESONIDE
     Indication: ASTHMA
     Dosage: 200 MICROGRAM, AS NECESSARY. FORMULATION: POWDER FOR INHALATION, 1 INHALER OF 100 DOSES.
     Route: 055
     Dates: start: 20190819
  3. AVAMYS [Concomitant]
     Active Substance: FLUTICASONE FUROATE
     Indication: RHINITIS
     Dosage: 27.5 MICROGRAM, QD. FORMULATION: PULVERIZATION, SUSPENSION FOR NASAL SPRAY, 1 BOTTLE WITH 120 SPRAYS
     Route: 045
     Dates: start: 20190819

REACTIONS (2)
  - Fall [Recovered/Resolved]
  - Syncope [Recovered/Resolved]

NARRATIVE: CASE EVENT DATE: 20191023
